FAERS Safety Report 12216517 (Version 1)
Quarter: 2016Q1

REPORT INFORMATION
  Report Type: Spontaneous
  Country: US (occurrence: US)
  Receive Date: 20160329
  Receipt Date: 20160329
  Transmission Date: 20160526
  Serious: No
  Sender: FDA-Public Use
  Company Number: US-TEVA-579049USA

PATIENT
  Age: 60 Year
  Sex: Female

DRUGS (1)
  1. MINOCYCLINE [Suspect]
     Active Substance: MINOCYCLINE\MINOCYCLINE HYDROCHLORIDE
     Route: 065

REACTIONS (3)
  - Drug hypersensitivity [Unknown]
  - Throat irritation [Unknown]
  - Pruritus [Unknown]

NARRATIVE: CASE EVENT DATE: 20150424
